FAERS Safety Report 8334838-5 (Version None)
Quarter: 2012Q2

REPORT INFORMATION
  Report Type: 
  Country: None (occurrence: None)
  Receive Date: 20120503
  Receipt Date: 20120423
  Transmission Date: 20120825
  Serious: Yes (Hospitalization, Other)
  Sender: FDA-Public Use
  Company Number: US-BAYER-2012-039970

PATIENT
  Age: 86 Year
  Sex: Female
  Weight: 63 kg

DRUGS (2)
  1. BAYER EXTRA STRENGTH PM [Suspect]
     Indication: HEADACHE
     Dosage: UNK
     Route: 048
     Dates: start: 20120101
  2. PLAVIX [Concomitant]

REACTIONS (7)
  - GASTRITIS [None]
  - OESOPHAGEAL ULCER [None]
  - ASTHENIA [None]
  - CONFUSIONAL STATE [None]
  - FALL [None]
  - PALLOR [None]
  - OESOPHAGEAL ULCER HAEMORRHAGE [None]
